FAERS Safety Report 8205251-6 (Version None)
Quarter: 2012Q1

REPORT INFORMATION
  Report Type: 
  Country: None (occurrence: None)
  Receive Date: 20120313
  Receipt Date: 20120308
  Transmission Date: 20120608
  Serious: Yes (Death)
  Sender: FDA-Public Use
  Company Number: US-ROCHE-1048008

PATIENT
  Sex: Male

DRUGS (4)
  1. XELODA [Suspect]
     Indication: BONE NEOPLASM MALIGNANT
  2. TARCEVA [Suspect]
     Indication: PRODUCT USED FOR UNKNOWN INDICATION
  3. XELODA [Suspect]
     Indication: NEOPLASM MALIGNANT
  4. XELODA [Suspect]

REACTIONS (1)
  - DEATH [None]
